FAERS Safety Report 11597676 (Version 1)
Quarter: 2015Q3

REPORT INFORMATION
  Report Type: Spontaneous
  Country: US (occurrence: US)
  Receive Date: 20150916
  Receipt Date: 20150916
  Transmission Date: 20151125
  Serious: No
  Sender: FDA-Public Use
  Company Number: US-ELI_LILLY_AND_COMPANY-US200801003234

PATIENT
  Sex: Female

DRUGS (4)
  1. FORTEO [Suspect]
     Active Substance: TERIPARATIDE
     Dates: start: 20080115
  2. NAPROSYN [Concomitant]
     Active Substance: NAPROXEN
  3. DIGOXIN. [Concomitant]
     Active Substance: DIGOXIN
  4. FORTEO [Suspect]
     Active Substance: TERIPARATIDE
     Indication: OSTEOPOROSIS
     Dates: start: 2007, end: 200705

REACTIONS (1)
  - Osteoarthritis [Unknown]
